FAERS Safety Report 5349715-1 (Version None)
Quarter: 2007Q2

REPORT INFORMATION
  Report Type: 
  Country: None (occurrence: None)
  Receive Date: 20070607
  Receipt Date: 20070605
  Transmission Date: 20071010
  Serious: Yes (Life-Threatening, Hospitalization, Other)
  Sender: FDA-Public Use
  Company Number: DE-BRISTOL-MYERS SQUIBB COMPANY-13800180

PATIENT
  Age: 43 Year
  Sex: Female

DRUGS (2)
  1. ERBITUX [Suspect]
     Indication: PANCREATIC CARCINOMA METASTATIC
     Dates: start: 20070518, end: 20070518
  2. GEMZAR [Concomitant]
     Dates: start: 20070518, end: 20070518

REACTIONS (2)
  - ACUTE ABDOMEN [None]
  - INTESTINAL PERFORATION [None]
